FAERS Safety Report 25633573 (Version 1)
Quarter: 2025Q3

REPORT INFORMATION
  Report Type: Spontaneous
  Country: EU (occurrence: EU)
  Receive Date: 20250801
  Receipt Date: 20250801
  Transmission Date: 20251020
  Serious: Yes (Death, Hospitalization, Other)
  Sender: PFIZER
  Company Number: EU-TAKEDA-2025TUS066100

PATIENT
  Age: 7 Year
  Sex: Female

DRUGS (9)
  1. RITUXIMAB [Suspect]
     Active Substance: RITUXIMAB
     Route: 065
  2. APADAMTASE ALFA [Suspect]
     Active Substance: APADAMTASE ALFA
     Indication: Congenital thrombotic thrombocytopenic purpura
     Route: 065
  3. RELSED [Concomitant]
     Route: 065
  4. TRANEXAMIC ACID [Concomitant]
     Active Substance: TRANEXAMIC ACID
     Route: 065
  5. ONDANSETRON [Concomitant]
     Active Substance: ONDANSETRON
     Route: 065
  6. EPINEPHRINE HYDROCHLORIDE [Concomitant]
     Active Substance: EPINEPHRINE HYDROCHLORIDE
     Route: 065
  7. UNSPECIFIED INGREDIENT [Concomitant]
     Active Substance: UNSPECIFIED INGREDIENT
     Route: 065
  8. EPINEPHRINE [Concomitant]
     Active Substance: EPINEPHRINE
     Route: 065
  9. APADAMTASE ALFA [Suspect]
     Active Substance: APADAMTASE ALFA

REACTIONS (23)
  - Cardiac arrest [Fatal]
  - Body temperature decreased [Unknown]
  - Feeling cold [Unknown]
  - Blood urine present [Unknown]
  - Platelet count increased [Unknown]
  - Haemolysis [Unknown]
  - Blood bilirubin increased [Unknown]
  - Jaundice [Unknown]
  - Blood lactate dehydrogenase increased [Unknown]
  - Loss of consciousness [Unknown]
  - Unresponsive to stimuli [Unknown]
  - Miosis [Unknown]
  - Tonic convulsion [Unknown]
  - Mydriasis [Unknown]
  - Pulmonary oedema [Unknown]
  - Abdominal distension [Unknown]
  - Blood pressure abnormal [Unknown]
  - Oxygen saturation abnormal [Unknown]
  - Pallor [Unknown]
  - Haemorrhage [Unknown]
  - Metabolic acidosis [Unknown]
  - Vomiting [Unknown]
  - Nausea [Unknown]
